FAERS Safety Report 18462445 (Version 1)
Quarter: 2020Q4

REPORT INFORMATION
  Report Type: Report from Study
  Country: BR (occurrence: BR)
  Receive Date: 20201104
  Receipt Date: 20201104
  Transmission Date: 20210114
  Serious: Yes (Other)
  Sender: FDA-Public Use
  Company Number: NVSC2020BR293355

PATIENT
  Sex: Female

DRUGS (1)
  1. DIOVAN AMLO FIX [Suspect]
     Active Substance: AMLODIPINE\VALSARTAN
     Indication: PRODUCT USED FOR UNKNOWN INDICATION
     Dosage: UNK 320/5 (MORE THAN 20 YEARS AGO IN 1995 OR 1996)
     Route: 065

REACTIONS (2)
  - Intestinal obstruction [Unknown]
  - Diverticulitis [Unknown]

NARRATIVE: CASE EVENT DATE: 2019
